FAERS Safety Report 6440580-8 (Version None)
Quarter: 2009Q4

REPORT INFORMATION
  Report Type: 
  Country: None (occurrence: None)
  Receive Date: 20091113
  Receipt Date: 20091102
  Transmission Date: 20100525
  Serious: Yes (Hospitalization)
  Sender: FDA-Public Use
  Company Number: TR-ELI_LILLY_AND_COMPANY-TR200911000359

PATIENT
  Sex: Female

DRUGS (5)
  1. HUMULIN R [Suspect]
     Dosage: 24 U, EACH MORNING
     Route: 064
     Dates: start: 20090101
  2. HUMULIN R [Suspect]
     Dosage: 24 U/NOON
     Route: 064
     Dates: start: 20090101
  3. HUMULIN R [Suspect]
     Dosage: 24 U, EACH EVENING
     Route: 064
     Dates: start: 20090101
  4. HUMULIN N [Suspect]
     Dosage: 8 U/NIGHT
     Route: 064
     Dates: start: 20090101
  5. MALTOFER FOL /01148001/ [Concomitant]
     Dosage: UNK UNK, DAILY (1/D)
     Route: 064

REACTIONS (3)
  - ASTHMA [None]
  - BRONCHITIS [None]
  - JAUNDICE [None]
